FAERS Safety Report 4403580-5 (Version None)
Quarter: 2004Q3

REPORT INFORMATION
  Report Type: 
  Country: None (occurrence: None)
  Receive Date: 20040721
  Receipt Date: 20040625
  Transmission Date: 20050211
  Serious: Yes (Life-Threatening)
  Sender: FDA-Public Use
  Company Number: JP-GLAXOSMITHKLINE-B0337263A

PATIENT
  Age: 71 Year
  Sex: Male
  Weight: 39 kg

DRUGS (11)
  1. VALTREX [Suspect]
     Indication: HERPES ZOSTER
     Dosage: 1000MG PER DAY
     Route: 048
     Dates: start: 20040613, end: 20040615
  2. ACYCLOVIR [Suspect]
     Indication: HERPES ZOSTER
     Dosage: 250MG TWICE PER DAY
     Route: 042
     Dates: start: 20040611, end: 20040612
  3. PREDONINE [Concomitant]
     Route: 048
  4. LAC B [Concomitant]
     Dosage: 3G PER DAY
     Route: 048
     Dates: start: 20040608, end: 20040615
  5. DEXTROSE [Concomitant]
     Dosage: 500MG PER DAY
     Route: 042
     Dates: start: 20040611, end: 20040612
  6. PREDNISOLONE [Concomitant]
     Indication: RHEUMATOID ARTHRITIS
     Route: 048
     Dates: start: 20040528
  7. MUCOSTA [Concomitant]
     Indication: GASTRITIS
     Dosage: 300MG PER DAY
     Route: 048
     Dates: start: 20030830, end: 20040615
  8. INHIBACE [Concomitant]
     Indication: CARDIAC FAILURE
     Dosage: .25MG PER DAY
     Route: 048
     Dates: start: 20040112, end: 20040615
  9. GAMOFA [Concomitant]
     Indication: GASTRITIS
     Dosage: 20MG PER DAY
     Route: 048
     Dates: start: 20030826, end: 20040615
  10. TEGRETOL [Concomitant]
     Indication: MANIA
     Dosage: 100MG PER DAY
     Route: 048
     Dates: start: 20030807, end: 20040615
  11. RIVOTRIL [Concomitant]
     Indication: MANIA
     Dosage: 1MG PER DAY
     Route: 048
     Dates: start: 20040115, end: 20040615

REACTIONS (2)
  - KIDNEY ENLARGEMENT [None]
  - RENAL FAILURE ACUTE [None]
